FAERS Safety Report 5720423-8 (Version None)
Quarter: 2008Q2

REPORT INFORMATION
  Report Type: 
  Country: None (occurrence: None)
  Receive Date: 20080428
  Receipt Date: 20080421
  Transmission Date: 20081010
  Serious: Yes (Hospitalization)
  Sender: FDA-Public Use
  Company Number: US-BOEHRINGER INGELHEIM GMBH, GERMANY-2008-BP-04044BP

PATIENT
  Sex: Male

DRUGS (9)
  1. SPIRIVA [Suspect]
     Indication: EMPHYSEMA
     Route: 048
     Dates: start: 20040101
  2. VERAPAMIL [Concomitant]
  3. DIGITEK [Concomitant]
  4. ASMANEX INHALER [Concomitant]
  5. XOPENEX HFA [Concomitant]
  6. NASACORT AQ [Concomitant]
  7. DOXAZOSIN MESYLATE [Concomitant]
  8. MINALGIN [Concomitant]
  9. COLAMAX [Concomitant]

REACTIONS (3)
  - FALL [None]
  - HEART RATE IRREGULAR [None]
  - HIP FRACTURE [None]
